FAERS Safety Report 4748736-7 (Version None)
Quarter: 2005Q3

REPORT INFORMATION
  Report Type: 
  Country: None (occurrence: None)
  Receive Date: 20050819
  Receipt Date: 20050811
  Transmission Date: 20060218
  Serious: Yes (Other)
  Sender: FDA-Public Use
  Company Number: 2005UW11953

PATIENT
  Age: 57 Year
  Sex: Female
  Weight: 61.2 kg

DRUGS (5)
  1. SEROQUEL [Suspect]
     Indication: SLEEP DISORDER
     Dosage: OFF AND ON
     Route: 048
     Dates: start: 20050101, end: 20050811
  2. KLONOPIN [Concomitant]
  3. ZANAFLEX [Concomitant]
  4. AVELOX [Concomitant]
  5. METHOTREXATE [Concomitant]

REACTIONS (4)
  - BLOOD GLUCOSE ABNORMAL [None]
  - BULIMIA NERVOSA [None]
  - INCONTINENCE [None]
  - MULTIPLE SCLEROSIS [None]
